FAERS Safety Report 12210139 (Version 1)
Quarter: 2016Q1

REPORT INFORMATION
  Report Type: Spontaneous
  Country: US (occurrence: US)
  Receive Date: 20160325
  Receipt Date: 20160325
  Transmission Date: 20160526
  Serious: No
  Sender: FDA-Public Use
  Company Number: US-PFIZER INC-2016142082

PATIENT
  Age: 82 Year
  Sex: Female
  Weight: 73 kg

DRUGS (2)
  1. LYRICA [Suspect]
     Active Substance: PREGABALIN
     Dosage: 75 MG, 2X/DAY ONE IN THE MORNING AND ONE AT NIGHT
     Route: 048
  2. LYRICA [Suspect]
     Active Substance: PREGABALIN
     Indication: SCIATICA
     Dosage: 75 MG, ALTERNATE DAY ONE EVERY OTHER NIGHT FOR 3 NIGHTS
     Route: 048
     Dates: start: 20151215

REACTIONS (1)
  - Joint swelling [Not Recovered/Not Resolved]

NARRATIVE: CASE EVENT DATE: 201602
